FAERS Safety Report 5362780-0 (Version None)
Quarter: 2007Q2

REPORT INFORMATION
  Report Type: 
  Country: None (occurrence: None)
  Receive Date: 20070530
  Receipt Date: 20070320
  Transmission Date: 20071010
  Serious: No
  Sender: FDA-Public Use
  Company Number: 2007PV032064

PATIENT
  Age: 47 Year
  Sex: Female
  Weight: 83.9154 kg

DRUGS (2)
  1. BYETTA [Suspect]
     Indication: GLUCOSE TOLERANCE IMPAIRED
     Dosage: 10 MCG;BID;SC / 05 MCG;BID;SC
     Route: 058
     Dates: start: 20070220, end: 20070318
  2. BYETTA [Suspect]
     Indication: GLUCOSE TOLERANCE IMPAIRED
     Dosage: 10 MCG;BID;SC / 05 MCG;BID;SC
     Route: 058
     Dates: start: 20070319

REACTIONS (2)
  - DECREASED APPETITE [None]
  - EARLY SATIETY [None]
